FAERS Safety Report 7794882-3 (Version None)
Quarter: 2011Q4

REPORT INFORMATION
  Report Type: 
  Country: None (occurrence: None)
  Receive Date: 20111004
  Receipt Date: 20110922
  Transmission Date: 20120403
  Serious: Yes (Hospitalization, Other)
  Sender: FDA-Public Use
  Company Number: PHHY2011BR57403

PATIENT
  Sex: Male

DRUGS (7)
  1. NAPRIX [Concomitant]
     Dosage: 1 DF, (5/25MG) DAILY
     Route: 048
     Dates: start: 20110401
  2. ASPIRIN [Concomitant]
     Indication: CARDIAC DISORDER
     Dosage: 1 DF, UNK
     Route: 048
  3. DIOVAN HCT [Suspect]
     Dosage: 1 DF, (80/12.5MG)
  4. PLAVIX [Concomitant]
     Dosage: 75 MG, DAILY
     Route: 048
     Dates: start: 20110401
  5. PANTOPRAZOLE [Concomitant]
     Dosage: 40 MG, DAILY
     Route: 048
     Dates: start: 20110401
  6. ATORVASTATIN [Concomitant]
     Dosage: 10 MG,DAILY
     Route: 048
     Dates: start: 20110401
  7. GLUCOFORMIN [Concomitant]
     Dosage: 500 MG, (2 TABLETS DAILY)
     Route: 048
     Dates: start: 20060101

REACTIONS (2)
  - DYSKINESIA [None]
  - CEREBROVASCULAR ACCIDENT [None]
